FAERS Safety Report 7936001-6 (Version None)
Quarter: 2011Q4

REPORT INFORMATION
  Report Type: 
  Country: None (occurrence: None)
  Receive Date: 20111123
  Receipt Date: 20111117
  Transmission Date: 20120403
  Serious: Yes (Other)
  Sender: FDA-Public Use
  Company Number: JP-BAYER-201015102BYL

PATIENT
  Age: 78 Year
  Sex: Male
  Weight: 59 kg

DRUGS (5)
  1. NEXAVAR [Suspect]
     Indication: HEPATIC NEOPLASM MALIGNANT
     Dosage: 400 MG, BID
     Route: 048
     Dates: start: 20100921, end: 20101007
  2. NEXAVAR [Suspect]
     Dosage: 400 MG (DAILY DOSE), ORAL
     Route: 048
     Dates: start: 20101008, end: 20110103
  3. LASIX [Concomitant]
     Indication: GLOMERULONEPHRITIS CHRONIC
     Dosage: 20 MG (DAILY DOSE), , ORAL
     Route: 048
  4. UREPEARL [Concomitant]
     Indication: PROPHYLAXIS
     Route: 061
     Dates: start: 20100914
  5. AMINOLEBAN EN [Concomitant]
     Indication: HEPATIC ENCEPHALOPATHY PROPHYLAXIS
     Dosage: 150 G (DAILY DOSE), , ORAL
     Route: 048

REACTIONS (4)
  - HEPATIC ENCEPHALOPATHY [None]
  - DYSPHONIA [None]
  - HEPATIC FUNCTION ABNORMAL [None]
  - ASCITES [None]
